FAERS Safety Report 5236388-1 (Version None)
Quarter: 2007Q1

REPORT INFORMATION
  Report Type: 
  Country: None (occurrence: None)
  Receive Date: 20061208
  Receipt Date: 20060323
  Transmission Date: 20070707
  Serious: Yes (Other)
  Sender: FDA-Public Use
  Company Number: 2006UW16377

PATIENT
  Sex: Female
  Weight: 101.6057 kg

DRUGS (2)
  1. CRESTOR [Suspect]
     Dosage: 120 MG HS PO
     Route: 048
     Dates: start: 20040806
  2. CRESTOR [Suspect]
     Dosage: 1 DF HS PO
     Route: 048
     Dates: end: 20041108

REACTIONS (3)
  - MUSCLE SPASMS [None]
  - MUSCULAR WEAKNESS [None]
  - TENDON DISORDER [None]
